FAERS Safety Report 8901179 (Version 1)
Quarter: 2012Q4

REPORT INFORMATION
  Report Type: 
  Country: US (occurrence: US)
  Receive Date: 20121109
  Receipt Date: 20121109
  Transmission Date: 20130627
  Serious: No
  Sender: FDA-Public Use
  Company Number: US-009507513-1210USA014279

PATIENT
  Age: 49 Year
  Sex: Male

DRUGS (2)
  1. RIBAVIRIN [Suspect]
     Indication: CHRONIC HEPATITIS C
     Dosage: UNK
  2. INTERFERON (UNSPECIFIED) [Suspect]
     Indication: CHRONIC HEPATITIS C
     Dosage: UNK

REACTIONS (1)
  - Drug intolerance [Unknown]
